FAERS Safety Report 17580062 (Version 1)
Quarter: 2020Q1

REPORT INFORMATION
  Report Type: Spontaneous
  Country: US (occurrence: US)
  Receive Date: 20200324
  Receipt Date: 20200324
  Transmission Date: 20200409
  Serious: Yes (Hospitalization)
  Sender: FDA-Public Use
  Company Number: None

PATIENT
  Age: 65 Year
  Sex: Female

DRUGS (16)
  1. VELPHORO [Concomitant]
     Active Substance: FERRIC OXYHYDROXIDE
  2. POT CHLORIDE [Concomitant]
     Active Substance: POTASSIUM CHLORIDE
  3. ALLOPURINOL. [Concomitant]
     Active Substance: ALLOPURINOL
  4. FUROSEMIDE. [Concomitant]
     Active Substance: FUROSEMIDE
  5. CIPRO [Concomitant]
     Active Substance: CIPROFLOXACIN HYDROCHLORIDE
  6. DIAZEPAM. [Concomitant]
     Active Substance: DIAZEPAM
  7. SODIUM BICAR [Concomitant]
  8. AMLODIPINE [Concomitant]
     Active Substance: AMLODIPINE BESYLATE
  9. VOTRIENT [Suspect]
     Active Substance: PAZOPANIB HYDROCHLORIDE
     Indication: RENAL CANCER
     Route: 048
     Dates: start: 20200210
  10. CEFACLOR. [Concomitant]
     Active Substance: CEFACLOR
  11. PANTOPRAZOLE [Concomitant]
     Active Substance: PANTOPRAZOLE
  12. TOPIMARATE [Concomitant]
  13. SPIRONOLACT [Concomitant]
     Active Substance: SPIRONOLACTONE
  14. ZAFIRLUKAST. [Concomitant]
     Active Substance: ZAFIRLUKAST
  15. POT CL MICRO [Concomitant]
  16. SUTENT [Concomitant]
     Active Substance: SUNITINIB MALATE

REACTIONS (1)
  - Therapy cessation [None]
